FAERS Safety Report 5253668-4 (Version None)
Quarter: 2007Q1

REPORT INFORMATION
  Report Type: 
  Country: None (occurrence: None)
  Receive Date: 20070226
  Receipt Date: 20070214
  Transmission Date: 20070707
  Serious: Yes (Death)
  Sender: FDA-Public Use
  Company Number: 2007US000269

PATIENT
  Age: 67 Year
  Sex: Female
  Weight: 87.5 kg

DRUGS (1)
  1. TACROLIMUS CAP (TACROLIMUS) CAPSULE [Suspect]
     Indication: KIDNEY TRANSPLANT REJECTION
     Dates: end: 20061001

REACTIONS (1)
  - SEPSIS [None]
